FAERS Safety Report 5587373-1 (Version None)
Quarter: 2007Q4

REPORT INFORMATION
  Report Type: 
  Country: None (occurrence: None)
  Receive Date: 20071207
  Receipt Date: 20070629
  Transmission Date: 20080405
  Serious: Yes (Other)
  Sender: FDA-Public Use
  Company Number: 2007054086

PATIENT
  Age: 30 Year
  Sex: Male
  Weight: 113.4 kg

DRUGS (2)
  1. VIAGRA [Suspect]
  2. PERCOCET [Concomitant]

REACTIONS (1)
  - ERECTION INCREASED [None]
